FAERS Safety Report 17818154 (Version 1)
Quarter: 2020Q2

REPORT INFORMATION
  Report Type: Spontaneous
  Country: IT (occurrence: IT)
  Receive Date: 20200522
  Receipt Date: 20200522
  Transmission Date: 20200714
  Serious: Yes (Hospitalization)
  Sender: FDA-Public Use
  Company Number: NVSC2020IT136531

PATIENT
  Age: 66 Year
  Sex: Male

DRUGS (4)
  1. VOLTAREN [Suspect]
     Active Substance: DICLOFENAC SODIUM
     Indication: HERNIA
     Dosage: 75 MG, QD
     Route: 030
  2. DICLOFENAC EG [Suspect]
     Active Substance: DICLOFENAC
     Indication: HERNIA
     Dosage: 100 MG, QD
     Route: 048
  3. LOBIVON [Concomitant]
     Active Substance: NEBIVOLOL HYDROCHLORIDE
     Indication: PRODUCT USED FOR UNKNOWN INDICATION
     Dosage: UNK
     Route: 065
  4. TRIATEC [RAMIPRIL] [Concomitant]
     Active Substance: RAMIPRIL
     Indication: PRODUCT USED FOR UNKNOWN INDICATION
     Dosage: 5 MG
     Route: 065

REACTIONS (4)
  - Hypercreatinaemia [Unknown]
  - Azotaemia [Unknown]
  - Gravitational oedema [Unknown]
  - Drug abuse [Unknown]

NARRATIVE: CASE EVENT DATE: 20200131
